FAERS Safety Report 6425178-X (Version None)
Quarter: 2009Q4

REPORT INFORMATION
  Report Type: 
  Country: None (occurrence: None)
  Receive Date: 20091102
  Receipt Date: 20091102
  Transmission Date: 20100525
  Serious: No
  Sender: FDA-Public Use
  Company Number: None

PATIENT
  Age: 62 Year
  Sex: Male

DRUGS (1)
  1. ALENDRONATE SODIUM [Suspect]
     Dosage: 70 QWEEK PO
     Route: 048
     Dates: start: 20080901, end: 20081024

REACTIONS (1)
  - DYSPEPSIA [None]
